FAERS Safety Report 13664840 (Version 3)
Quarter: 2017Q3

REPORT INFORMATION
  Report Type: Report from Study
  Country: US (occurrence: US)
  Receive Date: 20170619
  Receipt Date: 20170714
  Transmission Date: 20171127
  Serious: Yes (Hospitalization)
  Sender: FDA-Public Use
  Company Number: US-GILEAD-2017-0278904

PATIENT
  Age: 15 Year
  Sex: Male

DRUGS (7)
  1. ADCIRCA [Concomitant]
     Active Substance: TADALAFIL
  2. AMBRISENTAN [Suspect]
     Active Substance: AMBRISENTAN
     Indication: PULMONARY HYPERTENSION
     Dosage: 10 MG, QD
     Route: 065
     Dates: start: 20160817
  3. CALCIUM [Concomitant]
     Active Substance: CALCIUM
  4. METOPROLOL SUCCINATE W/METOPROLOL TARTRATE [Concomitant]
  5. ASPIRIN 81 [Concomitant]
     Active Substance: ASPIRIN
  6. SPIRONOLACTONE. [Concomitant]
     Active Substance: SPIRONOLACTONE
  7. MIRALAX [Concomitant]
     Active Substance: POLYETHYLENE GLYCOL 3350

REACTIONS (2)
  - Off label use [Not Recovered/Not Resolved]
  - Cardiac disorder [Recovered/Resolved]
